FAERS Safety Report 8353984-3 (Version None)
Quarter: 2012Q2

REPORT INFORMATION
  Report Type: 
  Country: None (occurrence: None)
  Receive Date: 20120511
  Receipt Date: 20120510
  Transmission Date: 20120825
  Serious: Yes (Other)
  Sender: FDA-Public Use
  Company Number: US-PFIZER INC-2012114917

PATIENT
  Sex: Female
  Weight: 56.689 kg

DRUGS (2)
  1. LYRICA [Suspect]
     Dosage: 75 MG, DAILY
     Route: 048
     Dates: end: 20120506
  2. LYRICA [Suspect]
     Indication: FIBROMYALGIA
     Dosage: UNK, EVERY TWO DAYS
     Route: 048
     Dates: start: 20120401, end: 20120506

REACTIONS (2)
  - PALPITATIONS [None]
  - DRUG INEFFECTIVE [None]
